FAERS Safety Report 8064294-6 (Version None)
Quarter: 2012Q1

REPORT INFORMATION
  Report Type: 
  Country: None (occurrence: None)
  Receive Date: 20120123
  Receipt Date: 20120120
  Transmission Date: 20120608
  Serious: No
  Sender: FDA-Public Use
  Company Number: US-BAYER-2012-006664

PATIENT
  Age: 49 Year
  Sex: Female

DRUGS (1)
  1. BETAPACE AF [Suspect]
     Dosage: 80 MG, UNK
     Dates: end: 20120119

REACTIONS (1)
  - NO ADVERSE EVENT [None]
